FAERS Safety Report 10662243 (Version 1)
Quarter: 2014Q4

REPORT INFORMATION
  Report Type: Spontaneous
  Country: AU (occurrence: None)
  Receive Date: 20141216
  Receipt Date: 20141216
  Transmission Date: 20150529
  Serious: Yes (Other)
  Sender: FDA-Public Use
  Company Number: 2014SA170078

PATIENT
  Age: 6 Year
  Sex: Male

DRUGS (7)
  1. HYDROCORTISONE (HYDROCORTISONE) [Suspect]
     Active Substance: HYDROCORTISONE
     Indication: INFECTION PARASITIC
     Dosage: TOPICAL.
  2. VINCRISTINE [Concomitant]
     Active Substance: VINCRISTINE
  3. MERCAPTOPURINE. [Concomitant]
     Active Substance: MERCAPTOPURINE
  4. METHOTREXATE [Concomitant]
     Active Substance: METHOTREXATE
  5. SULFAMETHOXAZOLE/TRIMETHOPRIM [Concomitant]
     Active Substance: SULFAMETHOXAZOLE\TRIMETHOPRIM
  6. DEXAMETHASONE. [Concomitant]
     Active Substance: DEXAMETHASONE
  7. METHYLPREDNISOLONE ACEPONATE [Suspect]
     Active Substance: METHYLPREDNISOLONE ACEPONATE
     Indication: INFECTION PARASITIC
     Dosage: UNKNOWN; TWICE A DAY; ONCE A WEEK.?

REACTIONS (6)
  - Scar [None]
  - Eczema [None]
  - Rash [None]
  - Infestation [None]
  - Chalazion [None]
  - Erythema [None]
